FAERS Safety Report 24660297 (Version 1)
Quarter: 2024Q4

REPORT INFORMATION
  Report Type: Spontaneous
  Country: US (occurrence: US)
  Receive Date: 20241125
  Receipt Date: 20241125
  Transmission Date: 20250115
  Serious: Yes (Death, Other)
  Sender: ALEMBIC
  Company Number: US-ALEMBIC PHARMACUETICALS LIMITED-2024SCAL001655

PATIENT

DRUGS (1)
  1. FLUOXETINE HYDROCHLORIDE [Suspect]
     Active Substance: FLUOXETINE HYDROCHLORIDE
     Indication: Product used for unknown indication
     Dosage: UNK
     Route: 065

REACTIONS (11)
  - Brain death [Fatal]
  - Coma [Fatal]
  - Depressed level of consciousness [Fatal]
  - Delirium [Fatal]
  - Rhabdomyolysis [Fatal]
  - Respiratory depression [Fatal]
  - Serotonin syndrome [Fatal]
  - Seizure [Fatal]
  - Hyperthermia [Fatal]
  - Toxicity to various agents [Fatal]
  - Tachycardia [Fatal]
